FAERS Safety Report 24074579 (Version 1)
Quarter: 2024Q3

REPORT INFORMATION
  Report Type: Spontaneous
  Country: DE (occurrence: DE)
  Receive Date: 20240710
  Receipt Date: 20240710
  Transmission Date: 20241016
  Serious: Yes (Congenital Anomaly, Other)
  Sender: TORRENT
  Company Number: None

PATIENT
  Sex: Male
  Weight: 2 kg

DRUGS (4)
  1. QUETIAPINE [Suspect]
     Active Substance: QUETIAPINE
     Indication: Product used for unknown indication
     Dosage: MOTHER DOSE 25 [MG/D]/ INTAKE QUESTIONABLE!
     Route: 064
  2. TRIMIPRAMINE [Suspect]
     Active Substance: TRIMIPRAMINE
     Indication: Product used for unknown indication
     Dosage: 75 [MG/D]/ 75 MG AT ONSET OF PREGNANCY, SSW 7.1 REDUCED TO 25 MG/D
     Route: 064
  3. BISOPROLOL [Suspect]
     Active Substance: BISOPROLOL\BISOPROLOL FUMARATE
     Indication: Product used for unknown indication
     Dosage: 5 [MG/D] MOTHER DOSE
     Route: 064
  4. LEVOTHYROXINE SODIUM [Concomitant]
     Active Substance: LEVOTHYROXINE SODIUM
     Indication: Product used for unknown indication
     Dosage: MOTHER DOSE 125 [UG/D]/ 100-125 UG/D ACCORDING TO TSH-VALUES
     Route: 064

REACTIONS (2)
  - Foetal exposure during pregnancy [Unknown]
  - Hypospadias [Unknown]

NARRATIVE: CASE EVENT DATE: 20231101
